FAERS Safety Report 7963614 (Version 2)
Quarter: 2013Q1

REPORT INFORMATION
  Report Type: Spontaneous
  Country: US (occurrence: US)
  Receive Date: 20110527
  Receipt Date: 20130311
  Transmission Date: 20140127
  Serious: Yes (Hospitalization, Other)
  Sender: FDA-Public Use
  Company Number: US-BAYER-2011-042205

PATIENT
  Age: 46 Year
  Sex: Female

DRUGS (1)
  1. BEYAZ [Suspect]
     Indication: PREMENSTRUAL DYSPHORIC DISORDER
     Dosage: UNK
     Dates: start: 201011, end: 20110131

REACTIONS (9)
  - Renal vein thrombosis [Recovered/Resolved]
  - International normalised ratio increased [Recovered/Resolved]
  - Menstruation delayed [Recovered/Resolved]
  - Pain [Recovered/Resolved]
  - Streptococcal infection [Unknown]
  - Abdominal pain [Recovered/Resolved]
  - Vomiting [Recovered/Resolved]
  - Diarrhoea [Recovered/Resolved]
  - Feeling hot [Unknown]
